FAERS Safety Report 7348990-1 (Version None)
Quarter: 2011Q1

REPORT INFORMATION
  Report Type: 
  Country: None (occurrence: None)
  Receive Date: 20110303
  Receipt Date: 20110222
  Transmission Date: 20110831
  Serious: Yes (Hospitalization)
  Sender: FDA-Public Use
  Company Number: 027933

PATIENT
  Age: 6 Year
  Sex: Female

DRUGS (2)
  1. TOPIRAMATE [Suspect]
     Dosage: 25 UNITS UNSPECIFIED, ORAL
     Route: 048
     Dates: start: 20090101
  2. KEPPRA [Suspect]
     Dosage: 250 UNITS UNSPECIFIED, ORAL
     Route: 048
     Dates: start: 20100501

REACTIONS (1)
  - BLOOD AMYLASE INCREASED [None]
